FAERS Safety Report 7867038-3 (Version None)
Quarter: 2011Q4

REPORT INFORMATION
  Report Type: 
  Country: None (occurrence: None)
  Receive Date: 20111028
  Receipt Date: 20111019
  Transmission Date: 20120403
  Serious: Yes (Other)
  Sender: FDA-Public Use
  Company Number: JP-JNJFOC-20111003207

PATIENT
  Age: 17 Year
  Sex: Female

DRUGS (3)
  1. CONCERTA [Suspect]
     Indication: PRODUCT USED FOR UNKNOWN INDICATION
     Route: 048
     Dates: start: 20110815, end: 20110822
  2. CONCERTA [Suspect]
     Route: 048
     Dates: start: 20110826
  3. CONCERTA [Suspect]
     Route: 048
     Dates: start: 20110823, end: 20110825

REACTIONS (1)
  - MALAISE [None]
